FAERS Safety Report 15797809 (Version 3)
Quarter: 2019Q1

REPORT INFORMATION
  Report Type: Report from Study
  Country: None (occurrence: US)
  Receive Date: 20190108
  Receipt Date: 20190212
  Transmission Date: 20190417
  Serious: Yes (Hospitalization)
  Sender: FDA-Public Use
  Company Number: US-ABBVIE-19K-163-2614559-00

PATIENT
  Age: 63 Year
  Sex: Female
  Weight: 92.16 kg

DRUGS (5)
  1. VITAMIN D3 [Concomitant]
     Active Substance: CHOLECALCIFEROL
     Indication: PRODUCT USED FOR UNKNOWN INDICATION
  2. HUMIRA [Suspect]
     Active Substance: ADALIMUMAB
     Indication: RHEUMATOID ARTHRITIS
     Route: 058
     Dates: end: 2018
  3. CELECOXIB. [Concomitant]
     Active Substance: CELECOXIB
     Indication: PRODUCT USED FOR UNKNOWN INDICATION
  4. FOLIC ACID. [Concomitant]
     Active Substance: FOLIC ACID
     Indication: PRODUCT USED FOR UNKNOWN INDICATION
  5. L-THYROXINE [Concomitant]
     Active Substance: LEVOTHYROXINE
     Indication: PRODUCT USED FOR UNKNOWN INDICATION

REACTIONS (10)
  - Inflammation [Recovered/Resolved]
  - Swelling [Recovering/Resolving]
  - Sinusitis [Recovered/Resolved]
  - Injection site pain [Not Recovered/Not Resolved]
  - Back pain [Recovering/Resolving]
  - Haemoptysis [Unknown]
  - Pulmonary fibrosis [Unknown]
  - Dyspnoea [Unknown]
  - Lung infection [Recovering/Resolving]
  - Pulmonary mass [Unknown]

NARRATIVE: CASE EVENT DATE: 2018
